FAERS Safety Report 8833754 (Version 1)
Quarter: 2012Q4

REPORT INFORMATION
  Report Type: 
  Country: JP (occurrence: JP)
  Receive Date: 20121010
  Receipt Date: 20121010
  Transmission Date: 20130627
  Serious: Yes (Other)
  Sender: FDA-Public Use
  Company Number: JP-PFIZER INC-2012249492

PATIENT
  Sex: Male

DRUGS (1)
  1. SOLU-CORTEF [Suspect]
     Indication: AURICULAR SWELLING
     Dosage: 200 mg, 1x/day

REACTIONS (1)
  - Renal embolism [Unknown]
